FAERS Safety Report 5067505-4 (Version None)
Quarter: 2006Q3

REPORT INFORMATION
  Report Type: 
  Country: None (occurrence: None)
  Receive Date: 20060713
  Receipt Date: 20060403
  Transmission Date: 20061208
  Serious: Yes (Other)
  Sender: FDA-Public Use
  Company Number: 245548

PATIENT
  Sex: Female

DRUGS (2)
  1. ACTIVELLA [Suspect]
     Indication: MENOPAUSAL SYMPTOMS
     Dates: start: 20020101, end: 20030101
  2. NORLUTATE(NORESTHISTERONE ACETATE) [Suspect]
     Indication: MENOPAUSAL SYMPTOMS
     Dates: start: 19830101, end: 19830101

REACTIONS (1)
  - BREAST CANCER [None]
